FAERS Safety Report 9508214 (Version 1)
Quarter: 2013Q3

REPORT INFORMATION
  Report Type: Spontaneous
  Country: US (occurrence: US)
  Receive Date: 20130909
  Receipt Date: 20130909
  Transmission Date: 20140515
  Serious: Yes (Other)
  Sender: FDA-Public Use
  Company Number: US-PFIZER INC-2013257795

PATIENT
  Age: 71 Year
  Sex: Female
  Weight: 81.63 kg

DRUGS (15)
  1. GABAPENTIN [Suspect]
     Indication: PAIN IN EXTREMITY
     Dosage: UNKNOWN DOSE DAILY
     Route: 048
     Dates: start: 20130723, end: 2013
  2. GABAPENTIN [Suspect]
     Indication: PAIN
     Dosage: 300 MG, 2X/DAY
     Route: 048
     Dates: start: 2013, end: 2013
  3. VITAMIN C [Concomitant]
     Dosage: 500MG DAILY
  4. MONTELUKAST SODIUM [Concomitant]
     Dosage: UNK DAILY
  5. LOSARTAN [Concomitant]
     Dosage: UNKNOWN DOSE DAILY
  6. AZATHIOPRINE [Concomitant]
     Indication: SCLERODERMA
     Dosage: UNKNOWN DOSE DAILY
  7. PREDNISONE [Concomitant]
     Indication: SCLERODERMA
     Dosage: UNKNOWN DOSE DAILY
  8. ZYRTEC LIQUID GELS [Concomitant]
     Dosage: ONE CAPSULE DAILY AT NIGHT
  9. PROLIA [Concomitant]
     Indication: OSTEOPOROSIS
     Dosage: UNK, EVERY 6 MONTH
  10. ASPIRIN [Concomitant]
     Dosage: 81 MG/DAY
  11. BIOTIN [Concomitant]
     Indication: HAIR DISORDER
     Dosage: UNK
  12. VYTORIN [Concomitant]
     Dosage: EZETIMIBE 10 MG/SIMVASTATIN 20MG, 1X/DAY
  13. NEXIUM [Concomitant]
     Indication: GASTROOESOPHAGEAL REFLUX DISEASE
     Dosage: 40 MG, 2X/DAY
  14. MAXALT [Concomitant]
     Indication: MIGRAINE
     Dosage: UNK, AS NEEDED
  15. CENTRUM SILVER WOMEN^S 50+ [Concomitant]
     Dosage: UNKNOWN DOSE DAILY

REACTIONS (4)
  - Lung disorder [Unknown]
  - Anaemia [Unknown]
  - Nausea [Recovering/Resolving]
  - Drug intolerance [Unknown]
